FAERS Safety Report 9116276 (Version 3)
Quarter: 2013Q3

REPORT INFORMATION
  Report Type: Spontaneous
  Country: IN (occurrence: IN)
  Receive Date: 20130225
  Receipt Date: 20130729
  Transmission Date: 20140515
  Serious: Yes (Life-Threatening, Other)
  Sender: FDA-Public Use
  Company Number: IN-RANBAXY-2013RR-65259

PATIENT
  Age: 11 Month
  Sex: 0

DRUGS (1)
  1. AMLODIPINE [Suspect]
     Indication: PRODUCT USED FOR UNKNOWN INDICATION
     Dosage: 15 MG, TID
     Route: 065

REACTIONS (13)
  - Toxicity to various agents [Recovering/Resolving]
  - Vomiting [Recovering/Resolving]
  - Lethargy [Recovering/Resolving]
  - Dyspnoea [Recovering/Resolving]
  - Heart sounds abnormal [Recovering/Resolving]
  - Shock [Recovering/Resolving]
  - Prerenal failure [Recovering/Resolving]
  - Cardiac failure congestive [Recovering/Resolving]
  - Pulmonary oedema [Recovering/Resolving]
  - Wrong drug administered [Recovering/Resolving]
  - Overdose [Recovering/Resolving]
  - Metabolic acidosis [Unknown]
  - Hepatic enzyme increased [Unknown]
